FAERS Safety Report 16878229 (Version 1)
Quarter: 2019Q4

REPORT INFORMATION
  Report Type: Spontaneous
  Country: RS (occurrence: RS)
  Receive Date: 20191002
  Receipt Date: 20191002
  Transmission Date: 20200122
  Serious: Yes (Other)
  Sender: FDA-Public Use
  Company Number: PHHY2019RS227331

PATIENT
  Age: 16 Year
  Sex: Female
  Weight: 43 kg

DRUGS (1)
  1. LENDACIN [Suspect]
     Active Substance: CEFTRIAXONE SODIUM
     Indication: PERITONSILLAR ABSCESS
     Dosage: 1 G, BID
     Route: 042

REACTIONS (4)
  - Chest pain [Recovered/Resolved]
  - Anxiety [Unknown]
  - Face oedema [Recovered/Resolved]
  - Pruritus [Recovered/Resolved]

NARRATIVE: CASE EVENT DATE: 20190917
